FAERS Safety Report 9157164 (Version 1)
Quarter: 2013Q1

REPORT INFORMATION
  Report Type: Spontaneous
  Country: CO (occurrence: CO)
  Receive Date: 20130312
  Receipt Date: 20130312
  Transmission Date: 20140127
  Serious: Yes (Hospitalization, Other)
  Sender: FDA-Public Use
  Company Number: CO-PFIZER INC-2013080714

PATIENT
  Age: 83 Year
  Sex: Female

DRUGS (3)
  1. ENBREL [Suspect]
     Indication: RHEUMATOID ARTHRITIS
     Dosage: 50 MG, WEEKLY
     Route: 058
     Dates: start: 2011
  2. MEDROL [Suspect]
     Indication: RHEUMATOID ARTHRITIS
     Dosage: 4 MG, 1X/DAY
     Route: 048
     Dates: start: 2007
  3. ACETAMINOPHEN [Concomitant]
     Indication: BONE PAIN
     Dosage: UNK, TWICE DAILY
     Route: 048

REACTIONS (2)
  - Thrombophlebitis [Recovering/Resolving]
  - Hypertension [Unknown]
